FAERS Safety Report 9733880 (Version 2)
Quarter: 2014Q1

REPORT INFORMATION
  Report Type: Spontaneous
  Country: PT (occurrence: FR)
  Receive Date: 20131205
  Receipt Date: 20140203
  Transmission Date: 20141002
  Serious: Yes (Hospitalization)
  Sender: FDA-Public Use
  Company Number: 2013SP003503

PATIENT
  Age: 65 Year
  Sex: Male

DRUGS (15)
  1. ZEBINIX (ESLICARBAZEPINE ACETATE) [Suspect]
     Indication: EPILEPSY
     Route: 048
     Dates: start: 20131121, end: 20131129
  2. ZEBINIX (ESLICARBAZEPINE ACETATE) [Suspect]
     Indication: EPILEPSY
     Route: 048
     Dates: start: 20131018, end: 20131120
  3. ZEBINIX (ESLICARBAZEPINE ACETATE) [Suspect]
     Indication: EPILEPSY
     Route: 048
     Dates: start: 20130926, end: 20131017
  4. TEGRETOL [Concomitant]
     Dates: start: 20131129
  5. TEGRETOL [Concomitant]
     Dates: start: 20131018, end: 20131128
  6. TEGRETOL [Concomitant]
     Dates: end: 20131017
  7. FLUOXETINE [Concomitant]
  8. LAMOTRIGINE [Concomitant]
  9. MESTINON [Concomitant]
  10. TRIMEBUTINE                        /00465202/ [Concomitant]
  11. MOVICOL                            /01625101/ [Concomitant]
  12. DITROPAN [Concomitant]
  13. OMEXEL [Concomitant]
  14. DIFFU-K [Concomitant]
  15. MYCOSTER                           /00619301/ [Concomitant]
     Route: 061

REACTIONS (5)
  - Abdominal pain [Recovered/Resolved]
  - Vomiting [Recovered/Resolved]
  - Diarrhoea [Recovered/Resolved]
  - Abdominal distension [Recovered/Resolved]
  - Constipation [Recovered/Resolved]
